FAERS Safety Report 6171420-2 (Version None)
Quarter: 2009Q2

REPORT INFORMATION
  Report Type: 
  Country: None (occurrence: None)
  Receive Date: 20090424
  Receipt Date: 20081211
  Transmission Date: 20091009
  Serious: Yes (Other)
  Sender: FDA-Public Use
  Company Number: WAES 0812USA02607

PATIENT
  Age: 17 Year
  Sex: Male

DRUGS (4)
  1. SINGULAIR [Suspect]
     Indication: ASTHMA
     Dosage: 10 MG/DAILY/PO
     Route: 048
  2. LAMICTAL [Concomitant]
  3. AMOXICILLIN [Concomitant]
  4. PREDNISONE [Concomitant]

REACTIONS (1)
  - CONVULSION [None]
